FAERS Safety Report 11015009 (Version 2)
Quarter: 2015Q2

REPORT INFORMATION
  Report Type: Spontaneous
  Country: US (occurrence: US)
  Receive Date: 20150412
  Receipt Date: 20150525
  Transmission Date: 20150821
  Serious: No
  Sender: FDA-Public Use
  Company Number: US-JNJFOC-20140607516

PATIENT
  Age: 40 Year
  Sex: Male
  Weight: 158.31 kg

DRUGS (2)
  1. SIMPONI [Suspect]
     Active Substance: GOLIMUMAB
     Indication: PSORIATIC ARTHROPATHY
     Route: 058
     Dates: start: 20140512, end: 20140512
  2. IBUPROFEN. [Concomitant]
     Active Substance: IBUPROFEN
     Route: 065
     Dates: start: 20140512

REACTIONS (6)
  - Psoriasis [Unknown]
  - Asthenia [Unknown]
  - Swollen tongue [Unknown]
  - Dry mouth [Unknown]
  - Joint swelling [Unknown]
  - Chest pain [Unknown]

NARRATIVE: CASE EVENT DATE: 20140512
